FAERS Safety Report 23759546 (Version 1)
Quarter: 2024Q2

REPORT INFORMATION
  Report Type: Spontaneous
  Country: BR (occurrence: BR)
  Receive Date: 20240418
  Receipt Date: 20240418
  Transmission Date: 20240716
  Serious: Yes (Death, Other)
  Sender: FDA-Public Use
  Company Number: BR-JNJFOC-20240438970

PATIENT
  Age: 76 Year
  Sex: Male

DRUGS (2)
  1. TECVAYLI [Suspect]
     Active Substance: TECLISTAMAB-CQYV
     Indication: Product used for unknown indication
     Dosage: HAD BEEN TAKING TECLISTAMAB FOR 6 MONTHS
     Route: 065
  2. HUMAN IMMUNOGLOBULIN G [Concomitant]
     Active Substance: HUMAN IMMUNOGLOBULIN G
     Dosage: PRE-DOSE WEEKLY
     Route: 065

REACTIONS (2)
  - Sepsis [Fatal]
  - Productive cough [Not Recovered/Not Resolved]
